FAERS Safety Report 9718871 (Version 2)
Quarter: 2013Q4

REPORT INFORMATION
  Report Type: Report from Study
  Country: US (occurrence: US)
  Receive Date: 20131127
  Receipt Date: 20131226
  Transmission Date: 20140711
  Serious: Yes (Other)
  Sender: FDA-Public Use
  Company Number: US-BAXTER-2013BAX046961

PATIENT
  Age: 57 Year
  Sex: Female
  Weight: 104.55 kg

DRUGS (4)
  1. GAMMAGARD LIQUID [Suspect]
     Indication: IMMUNODEFICIENCY COMMON VARIABLE
     Route: 042
     Dates: start: 2011, end: 201311
  2. GAMMAGARD LIQUID [Suspect]
     Route: 042
  3. TYLENOL [Concomitant]
     Indication: PREMEDICATION
     Route: 048
     Dates: start: 2011
  4. DIPHENHYDRAMINE [Concomitant]
     Indication: PREMEDICATION
     Route: 048
     Dates: start: 2011

REACTIONS (8)
  - Sinusitis [Recovered/Resolved]
  - Fungal infection [Not Recovered/Not Resolved]
  - Candida infection [Recovered/Resolved]
  - Concussion [Recovered/Resolved]
  - Feeling abnormal [Recovered/Resolved]
  - Nausea [Recovered/Resolved]
  - Vomiting [Recovered/Resolved]
  - Headache [Recovered/Resolved]
